FAERS Safety Report 21768068 (Version 1)
Quarter: 2022Q4

REPORT INFORMATION
  Report Type: Spontaneous
  Country: US (occurrence: US)
  Receive Date: 20221222
  Receipt Date: 20221222
  Transmission Date: 20230112
  Serious: Yes (Other)
  Sender: FDA-Public Use
  Company Number: US-INCYTE CORPORATION-2022IN012360

PATIENT

DRUGS (1)
  1. PEMAZYRE [Suspect]
     Active Substance: PEMIGATINIB
     Indication: Malignant peritoneal neoplasm
     Dosage: 9 MILLIGRAM, QD
     Route: 065
     Dates: start: 202212

REACTIONS (5)
  - Gastrointestinal obstruction [Unknown]
  - Dysphagia [Unknown]
  - Off label use [Unknown]
  - Nausea [Unknown]
  - Vomiting [Unknown]

NARRATIVE: CASE EVENT DATE: 20221201
